FAERS Safety Report 6795664-1 (Version None)
Quarter: 2010Q2

REPORT INFORMATION
  Report Type: 
  Country: None (occurrence: None)
  Receive Date: 20100625
  Receipt Date: 20100615
  Transmission Date: 20101027
  Serious: Yes (Other)
  Sender: FDA-Public Use
  Company Number: AU-SANOFI-AVENTIS-2010SA034154

PATIENT
  Sex: Female

DRUGS (1)
  1. ARAVA [Suspect]
     Dates: start: 20091218

REACTIONS (1)
  - BREAST CANCER [None]
